FAERS Safety Report 8621655-1 (Version None)
Quarter: 2012Q3

REPORT INFORMATION
  Report Type: 
  Country: None (occurrence: None)
  Receive Date: 20120817
  Receipt Date: 20120817
  Transmission Date: 20120928
  Serious: Yes (Other)
  Sender: FDA-Public Use
  Company Number: None

PATIENT
  Age: 23 Year
  Sex: Male
  Weight: 77.1115 kg

DRUGS (1)
  1. ESCITALORAM 20 GENERIC [Suspect]
     Indication: MAJOR DEPRESSION

REACTIONS (3)
  - DISEASE RECURRENCE [None]
  - DEPRESSION [None]
  - PRODUCT SUBSTITUTION ISSUE [None]
